FAERS Safety Report 10672110 (Version 1)
Quarter: 2014Q4

REPORT INFORMATION
  Report Type: Spontaneous
  Country: JP (occurrence: JP)
  Receive Date: 20141223
  Receipt Date: 20141223
  Transmission Date: 20150529
  Serious: Yes (Other)
  Sender: FDA-Public Use
  Company Number: JP-PFIZER INC-2014347171

PATIENT
  Age: 86 Year
  Sex: Male

DRUGS (14)
  1. WARFARIN [Concomitant]
     Active Substance: WARFARIN
     Dosage: 2 MG, 1 TABLET
     Route: 048
  2. ARICEPT [Concomitant]
     Active Substance: DONEPEZIL HYDROCHLORIDE
     Dosage: 5 MG, 1 TABLET
     Route: 048
  3. MAINTATE [Concomitant]
     Active Substance: BISOPROLOL FUMARATE
     Dosage: 2.5 MG, 1 TABLET
     Route: 048
  4. PARIET [Concomitant]
     Active Substance: RABEPRAZOLE SODIUM
     Dosage: 10 MG, 1 TABLET
     Route: 048
  5. FLOMOX [Concomitant]
     Active Substance: CEFCAPENE PIVOXIL HYDROCHLORIDE HYDRATE
     Dosage: 100MG, 3 TABLETS
     Route: 048
  6. LYRICA [Suspect]
     Active Substance: PREGABALIN
     Dosage: 75MG, 2 TABLETS
     Route: 048
  7. HALCION [Suspect]
     Active Substance: TRIAZOLAM
     Dosage: 0.125 MG, 1 TABLET, 1X/DAY
     Route: 048
  8. BAYASPIRIN [Concomitant]
     Active Substance: ASPIRIN
     Dosage: 100 MG, 1 TABLET
     Route: 048
  9. PREMINENT [Concomitant]
     Active Substance: HYDROCHLOROTHIAZIDE\LOSARTAN POTASSIUM
     Dosage: 100MG/12MG, 1 TABLET
     Route: 048
  10. AMARYL [Concomitant]
     Active Substance: GLIMEPIRIDE
     Dosage: 1 MG, 1 TABLET
     Route: 048
  11. LOXONIN [Concomitant]
     Active Substance: LOXOPROFEN SODIUM
     Dosage: 60 MG, 1 TABLET, AS NEEDED
     Route: 048
  12. MAGMITT [Concomitant]
     Active Substance: MAGNESIUM OXIDE
     Dosage: 250MG, 3 TABLETS
     Route: 048
  13. EQUA [Concomitant]
     Active Substance: VILDAGLIPTIN
     Dosage: 50MG, 2 TABLETS
     Route: 048
  14. CRESTOR [Concomitant]
     Active Substance: ROSUVASTATIN CALCIUM
     Dosage: 2.5 MG, 1 TABLET
     Route: 048

REACTIONS (3)
  - Fall [Unknown]
  - Oedema [Recovering/Resolving]
  - Dizziness [Unknown]
